FAERS Safety Report 20335472 (Version 2)
Quarter: 2022Q1

REPORT INFORMATION
  Report Type: Spontaneous
  Country: US (occurrence: US)
  Receive Date: 20220114
  Receipt Date: 20220321
  Transmission Date: 20220423
  Serious: No
  Sender: FDA-Public Use
  Company Number: US-ALXN-A202200348

PATIENT
  Sex: Female

DRUGS (2)
  1. SOLIRIS [Suspect]
     Active Substance: ECULIZUMAB
     Indication: Haemolytic uraemic syndrome
     Dosage: 1200 MG, Q2W
     Route: 042
     Dates: start: 202104
  2. SOLIRIS [Suspect]
     Active Substance: ECULIZUMAB
     Indication: Off label use

REACTIONS (4)
  - Off label use [Unknown]
  - Nausea [Not Recovered/Not Resolved]
  - Chest discomfort [Not Recovered/Not Resolved]
  - Vomiting [Not Recovered/Not Resolved]
